FAERS Safety Report 17915284 (Version 6)
Quarter: 2021Q2

REPORT INFORMATION
  Report Type: Spontaneous
  Country: JP (occurrence: JP)
  Receive Date: 20200619
  Receipt Date: 20210412
  Transmission Date: 20210717
  Serious: Yes (Hospitalization, Other)
  Sender: FDA-Public Use
  Company Number: JP-AMGEN-JPNSP2020094594

PATIENT
  Age: 78 Year
  Sex: Male
  Weight: 53.5 kg

DRUGS (9)
  1. PARSABIV [Suspect]
     Active Substance: ETELCALCETIDE HYDROCHLORIDE
     Indication: HYPERPARATHYROIDISM SECONDARY
     Dosage: 5 MG, Q56H
     Route: 010
     Dates: start: 20190619, end: 20190823
  2. MAXACALCITOL [Concomitant]
     Active Substance: MAXACALCITOL
     Dosage: 2.5 MUG, Q56H
     Route: 041
  3. FESIN [SACCHARATED IRON OXIDE] [Concomitant]
     Active Substance: IRON SUCROSE
     Dosage: 40 MG, QW
     Route: 042
     Dates: start: 20200224, end: 20200316
  4. LANTHANUM CARBONATE. [Concomitant]
     Active Substance: LANTHANUM CARBONATE
     Dosage: 1500 MILLIGRAM
     Route: 048
     Dates: start: 20200417
  5. PARSABIV [Suspect]
     Active Substance: ETELCALCETIDE HYDROCHLORIDE
     Dosage: 2.5 MG, Q56H
     Route: 010
     Dates: start: 20190826
  6. EPOETIN ALFA [Concomitant]
     Active Substance: ERYTHROPOIETIN
     Dosage: 1500 IU, Q4W
     Route: 042
     Dates: start: 20200323, end: 20201005
  7. FESIN [SACCHARATED IRON OXIDE] [Concomitant]
     Active Substance: IRON SUCROSE
     Dosage: 40 MG, QW
     Route: 042
     Dates: start: 20200629, end: 20200831
  8. FESIN [SACCHARATED IRON OXIDE] [Concomitant]
     Active Substance: IRON SUCROSE
     Dosage: 120 MG, QW
     Route: 042
     Dates: start: 20200617, end: 20200622
  9. FOSRENOL [Concomitant]
     Active Substance: LANTHANUM CARBONATE
     Dosage: 1500 UNK
     Route: 048
     Dates: end: 20200416

REACTIONS (8)
  - Hypocalcaemia [Recovering/Resolving]
  - Shunt occlusion [Recovering/Resolving]
  - Shunt occlusion [Recovering/Resolving]
  - Shunt occlusion [Recovering/Resolving]
  - Shunt occlusion [Recovering/Resolving]
  - Shunt occlusion [Recovering/Resolving]
  - Shunt occlusion [Recovering/Resolving]
  - Shunt occlusion [Recovering/Resolving]

NARRATIVE: CASE EVENT DATE: 20190708
